FAERS Safety Report 11797894 (Version 3)
Quarter: 2015Q4

REPORT INFORMATION
  Report Type: Report from Study
  Country: DE (occurrence: DE)
  Receive Date: 20151203
  Receipt Date: 20151228
  Transmission Date: 20160305
  Serious: Yes (Death, Other)
  Sender: FDA-Public Use
  Company Number: DE-CELGENE-062-POMAL-14074860

PATIENT

DRUGS (3)
  1. IMNOVID [Suspect]
     Active Substance: POMALIDOMIDE
     Indication: MYELOFIBROSIS
     Dosage: .5 MILLIGRAM
     Route: 048
  2. RUXOLITINIB [Suspect]
     Active Substance: RUXOLITINIB
     Indication: MYELOFIBROSIS
     Route: 065
  3. RUXOLITINIB [Suspect]
     Active Substance: RUXOLITINIB
     Route: 065

REACTIONS (18)
  - Abdominal pain [Unknown]
  - Fatigue [Unknown]
  - Septic shock [Fatal]
  - Musculoskeletal pain [Unknown]
  - Neutropenia [Unknown]
  - General physical health deterioration [Unknown]
  - Peripheral sensory neuropathy [Recovered/Resolved]
  - Infection [Unknown]
  - Dizziness [Unknown]
  - No therapeutic response [Unknown]
  - Death [Fatal]
  - General symptom [Unknown]
  - Renal failure [Fatal]
  - Pneumonia [Unknown]
  - Dyspnoea [Unknown]
  - Oedema peripheral [Unknown]
  - Hyperuricaemia [Unknown]
  - Anaemia [Unknown]
